FAERS Safety Report 7828565-8 (Version None)
Quarter: 2011Q4

REPORT INFORMATION
  Report Type: 
  Country: None (occurrence: None)
  Receive Date: 20111020
  Receipt Date: 20111020
  Transmission Date: 20120403
  Serious: Yes (Hospitalization)
  Sender: FDA-Public Use
  Company Number: None

PATIENT
  Age: 54 Year
  Sex: Female
  Weight: 95.254 kg

DRUGS (1)
  1. REBIF [Suspect]
     Indication: MULTIPLE SCLEROSIS
     Dosage: 1 PREFILLED SYRINGE
     Route: 058
     Dates: start: 20081020, end: 20110831

REACTIONS (2)
  - ACUTE MYELOID LEUKAEMIA [None]
  - FATIGUE [None]
